FAERS Safety Report 15172825 (Version 1)
Quarter: 2018Q3

REPORT INFORMATION
  Report Type: Report from Study
  Country: US (occurrence: US)
  Receive Date: 20180720
  Receipt Date: 20180720
  Transmission Date: 20181010
  Serious: Yes (Hospitalization)
  Sender: FDA-Public Use
  Company Number: US-BAYER-2018-127858

PATIENT
  Age: 30 Year
  Sex: Male

DRUGS (1)
  1. STIVARGA [Suspect]
     Active Substance: REGORAFENIB
     Indication: COLORECTAL CANCER
     Dosage: 120 MG DAILY
     Route: 048
     Dates: start: 20180702, end: 20180708

REACTIONS (9)
  - Heart rate increased [None]
  - Fatigue [None]
  - Abdominal pain [None]
  - Dizziness [None]
  - Infection [None]
  - Pain [None]
  - Off label use [None]
  - Pyrexia [None]
  - Balance disorder [None]

NARRATIVE: CASE EVENT DATE: 201807
